FAERS Safety Report 24886992 (Version 1)
Quarter: 2025Q1

REPORT INFORMATION
  Report Type: Spontaneous
  Country: US (occurrence: US)
  Receive Date: 20250127
  Receipt Date: 20250127
  Transmission Date: 20250409
  Serious: No
  Sender: Haleon PLC
  Company Number: US-HALEON-2224828

PATIENT

DRUGS (1)
  1. SENSODYNE PRONAMEL [Suspect]
     Active Substance: POTASSIUM NITRATE\SODIUM FLUORIDE
     Indication: Hyperaesthesia teeth
     Dates: end: 20250122

REACTIONS (3)
  - Hyperaesthesia teeth [Not Recovered/Not Resolved]
  - Tongue discomfort [Unknown]
  - Condition aggravated [Not Recovered/Not Resolved]
